FAERS Safety Report 8250310-5 (Version None)
Quarter: 2012Q1

REPORT INFORMATION
  Report Type: 
  Country: None (occurrence: None)
  Receive Date: 20120328
  Receipt Date: 20120312
  Transmission Date: 20120608
  Serious: Yes (Hospitalization)
  Sender: FDA-Public Use
  Company Number: TCI2012A01018

PATIENT
  Age: 59 Year
  Sex: Male

DRUGS (4)
  1. PHENYTOIN [Suspect]
     Indication: EPILEPSY
     Dosage: 300 MG (100 MG, 3 IN 1 D) 200 MG (200 MG, 1 D), 225 MG (225 MG, 1 D)
     Route: 048
     Dates: start: 19940101, end: 20120202
  2. PHENYTOIN [Suspect]
     Indication: EPILEPSY
     Dosage: 300 MG (100 MG, 3 IN 1 D) 200 MG (200 MG, 1 D), 225 MG (225 MG, 1 D)
     Route: 048
     Dates: start: 20120203, end: 20120217
  3. PHENYTOIN [Suspect]
     Indication: EPILEPSY
     Dosage: 300 MG (100 MG, 3 IN 1 D) 200 MG (200 MG, 1 D), 225 MG (225 MG, 1 D)
     Route: 048
     Dates: start: 20120218
  4. LANSOPRAZOLE [Suspect]
     Indication: GASTROOESOPHAGEAL REFLUX DISEASE
     Dosage: 15 MG (15 MG, 1 IN 1 D)
     Route: 048
     Dates: start: 20110902, end: 20120209

REACTIONS (13)
  - TOXICITY TO VARIOUS AGENTS [None]
  - TREATMENT NONCOMPLIANCE [None]
  - DRUG LEVEL INCREASED [None]
  - CONVULSION [None]
  - DIZZINESS [None]
  - INSOMNIA [None]
  - DYSLALIA [None]
  - CONDITION AGGRAVATED [None]
  - NAUSEA [None]
  - DRUG INTERACTION [None]
  - ANXIETY [None]
  - GASTROOESOPHAGEAL REFLUX DISEASE [None]
  - HYPOPHAGIA [None]
